FAERS Safety Report 19437841 (Version 1)
Quarter: 2021Q2

REPORT INFORMATION
  Report Type: Spontaneous
  Country: US (occurrence: US)
  Receive Date: 20210619
  Receipt Date: 20210619
  Transmission Date: 20210717
  Serious: Yes (Other)
  Sender: FDA-Public Use
  Company Number: US-CADILA HEALTHCARE LIMITED-US-ZYDUS-066893

PATIENT

DRUGS (5)
  1. DOXORUBICIN [Suspect]
     Active Substance: DOXORUBICIN
     Indication: CHEMOTHERAPY
     Route: 064
  2. DEXAMETHASONE. [Suspect]
     Active Substance: DEXAMETHASONE
     Indication: CHEMOTHERAPY
     Route: 064
  3. CYCLOPHOSPHAMIDE. [Suspect]
     Active Substance: CYCLOPHOSPHAMIDE
     Indication: CHEMOTHERAPY
     Route: 064
  4. VINCRISTINE [Suspect]
     Active Substance: VINCRISTINE
     Indication: CHEMOTHERAPY
     Route: 064
  5. RITUXIMAB. [Suspect]
     Active Substance: RITUXIMAB
     Indication: CHEMOTHERAPY
     Route: 064

REACTIONS (5)
  - Immune system disorder [Unknown]
  - Neutropenia [Unknown]
  - Hypogammaglobulinaemia [Unknown]
  - Foetal exposure during pregnancy [Unknown]
  - Lymphopenia [Unknown]
